FAERS Safety Report 20873392 (Version 2)
Quarter: 2022Q3

REPORT INFORMATION
  Report Type: Spontaneous
  Country: SI (occurrence: SI)
  Receive Date: 20220525
  Receipt Date: 20220831
  Transmission Date: 20221027
  Serious: Yes (Other)
  Sender: FDA-Public Use
  Company Number: SI-JNJFOC-20220538539

PATIENT
  Age: 7 Decade
  Sex: Male

DRUGS (6)
  1. DARZALEX [Suspect]
     Active Substance: DARATUMUMAB
     Indication: Plasmacytoma
     Dosage: 1. AND 2. CYCLE
  2. DARZALEX [Suspect]
     Active Substance: DARATUMUMAB
     Route: 058
  3. DARZALEX [Suspect]
     Active Substance: DARATUMUMAB
     Dosage: (3-6 CYCLE
  4. DARZALEX [Suspect]
     Active Substance: DARATUMUMAB
     Dosage: (3-6 CYCLE
  5. LENALIDOMIDE [Suspect]
     Active Substance: LENALIDOMIDE
     Indication: Plasmacytoma
     Dosage: 21 DAYS IN A ROW
     Route: 048
  6. DEXAMETHASONE [Suspect]
     Active Substance: DEXAMETHASONE
     Indication: Plasmacytoma
     Route: 048

REACTIONS (9)
  - Sepsis [Unknown]
  - Gastroenteritis [Unknown]
  - Inguinal hernia [Unknown]
  - Neutropenia [Unknown]
  - COVID-19 [Unknown]
  - Varicella zoster virus infection [Unknown]
  - Spinal disorder [Unknown]
  - Enthesopathy [Unknown]
  - Rotator cuff syndrome [Unknown]

NARRATIVE: CASE EVENT DATE: 20200601
